FAERS Safety Report 9447834 (Version 2)
Quarter: 2016Q1

REPORT INFORMATION
  Report Type: Spontaneous
  Country: BR (occurrence: BR)
  Receive Date: 20130808
  Receipt Date: 20160308
  Transmission Date: 20160526
  Serious: Yes (Other)
  Sender: FDA-Public Use
  Company Number: BR-AMGEN-BRASP2012083852

PATIENT
  Age: 48 Year
  Sex: Female
  Weight: 70 kg

DRUGS (8)
  1. ENBREL [Suspect]
     Active Substance: ETANERCEPT
     Dosage: 50 MG, ONCE WEEKLY
     Route: 065
  2. CAPTOPRIL. [Concomitant]
     Active Substance: CAPTOPRIL
     Indication: HYPERTENSION
     Dosage: 20 MG, QD
     Route: 048
  3. PREDNISONE. [Concomitant]
     Active Substance: PREDNISONE
     Indication: PAIN
     Dosage: STRENGTH 20MG UNSPECIFIED POSOLOGY
  4. NIMESULIDE [Concomitant]
     Active Substance: NIMESULIDE
     Indication: PAIN
     Dosage: UNK
  5. ENBREL [Suspect]
     Active Substance: ETANERCEPT
     Indication: RHEUMATOID ARTHRITIS
     Dosage: 50 MG, ONCE WEEKLY
     Route: 058
     Dates: start: 201211, end: 20130608
  6. LOSARTAN. [Concomitant]
     Active Substance: LOSARTAN
     Indication: HYPERTENSION
     Dosage: 1 TABLET (50 MG), 2X/DAY
     Route: 048
  7. PARACETAMOL [Concomitant]
     Active Substance: ACETAMINOPHEN
     Indication: PAIN
     Dosage: STRENGTH 750 MGUNSPECIFIED DOSE, AS NEEDED
  8. HYDROCHLOROTHIAZIDE. [Concomitant]
     Active Substance: HYDROCHLOROTHIAZIDE
     Indication: HYPERTENSION
     Dosage: 25 MG, QD
     Route: 048

REACTIONS (17)
  - Malaise [Recovered/Resolved]
  - Retching [Unknown]
  - Pain in extremity [Not Recovered/Not Resolved]
  - Dry mouth [Recovered/Resolved]
  - Tongue dry [Recovered/Resolved]
  - Abdominal pain [Recovered/Resolved]
  - Foot deformity [Not Recovered/Not Resolved]
  - Wrong technique in product usage process [Unknown]
  - Paraesthesia [Unknown]
  - Rheumatoid arthritis [Not Recovered/Not Resolved]
  - Renal pain [Recovered/Resolved]
  - Chills [Recovered/Resolved]
  - Limb discomfort [Not Recovered/Not Resolved]
  - Arthralgia [Not Recovered/Not Resolved]
  - Dysphonia [Unknown]
  - Chest pain [Unknown]
  - Abdominal distension [Unknown]

NARRATIVE: CASE EVENT DATE: 201212
